FAERS Safety Report 7553552-7 (Version None)
Quarter: 2011Q2

REPORT INFORMATION
  Report Type: 
  Country: None (occurrence: None)
  Receive Date: 20110617
  Receipt Date: 20110131
  Transmission Date: 20111010
  Serious: Yes (Hospitalization, Other)
  Sender: FDA-Public Use
  Company Number: US-BAYER-201016355NA

PATIENT
  Age: 26 Year
  Sex: Female
  Weight: 58.957 kg

DRUGS (10)
  1. ALPRAZOLAM [Concomitant]
     Dosage: 0.25 MG, UNK
     Route: 048
  2. PANTOPRAZOLE [Concomitant]
     Dosage: 40 MG, UNK
     Route: 048
  3. ZOLOFT [Concomitant]
     Dosage: UNK UNK, QD
     Dates: start: 20050829
  4. MIDODRINE HYDROCHLORIDE [Concomitant]
     Dosage: 5 MG, UNK
     Route: 048
  5. CITALOPRAM HYDROBROMIDE [Concomitant]
     Dosage: 10 MG, UNK
     Route: 048
  6. SERTRALINE HYDROCHLORIDE [Concomitant]
     Dosage: 100 MG, UNK
     Route: 048
  7. YASMIN [Suspect]
     Dosage: UNK
     Dates: start: 20050628
  8. YASMIN [Suspect]
     Indication: CONTRACEPTION
     Route: 048
     Dates: start: 20050101, end: 20080601
  9. ALPRAZOLAM [Concomitant]
     Dosage: UNK UNK, PRN
     Dates: start: 20050829
  10. ATENOLOL [Concomitant]
     Dosage: 25 MG, UNK
     Route: 048

REACTIONS (2)
  - SUPRAVENTRICULAR TACHYCARDIA [None]
  - PALPITATIONS [None]
